FAERS Safety Report 4269620-1 (Version None)
Quarter: 2004Q1

REPORT INFORMATION
  Report Type: 
  Country: None (occurrence: None)
  Receive Date: 20040112
  Receipt Date: 20031229
  Transmission Date: 20041129
  Serious: Yes (Hospitalization, Other)
  Sender: FDA-Public Use
  Company Number: 2003127135

PATIENT
  Age: 61 Year
  Sex: Male
  Weight: 86 kg

DRUGS (9)
  1. NEURONTIN [Suspect]
     Indication: PARAESTHESIA
     Dosage: 3200 MG (QID), ORAL
     Route: 048
     Dates: start: 20010802
  2. ALLOPURINOL [Concomitant]
  3. KARVEA HCT (HYDROCHLOROTHIAZIDE, IRBESARTAN) [Concomitant]
  4. CLOPIDOGREL BISULFATE [Concomitant]
  5. LEVOTHYROXINE SODIUM [Concomitant]
  6. FLUVASTATIN SODIUM (FLUVASTATIN SODIUM) [Concomitant]
  7. PRIMIDONE [Concomitant]
  8. NOVOTHYRAL (LEVOTHYROXINE SODIUM, LIOTHYRONINE SODIUM) [Concomitant]
  9. RANITIDINE HYDROCHLORIDE [Concomitant]

REACTIONS (7)
  - ASTHENIA [None]
  - DIARRHOEA [None]
  - DIZZINESS [None]
  - MARKEDLY REDUCED DIETARY INTAKE [None]
  - PARAESTHESIA [None]
  - TREMOR [None]
  - VOMITING [None]
